FAERS Safety Report 6309878-8 (Version None)
Quarter: 2009Q3

REPORT INFORMATION
  Report Type: 
  Country: None (occurrence: None)
  Receive Date: 20090814
  Receipt Date: 20090806
  Transmission Date: 20100115
  Serious: Yes (Life-Threatening)
  Sender: FDA-Public Use
  Company Number: FR-TYCO HEALTHCARE/MALLINCKRODT-T200901486

PATIENT
  Age: 73 Year
  Sex: Female

DRUGS (10)
  1. OPTIJECT [Suspect]
     Indication: COMPUTERISED TOMOGRAM ABDOMEN
     Dosage: UNK
     Route: 042
     Dates: start: 20090506, end: 20090506
  2. METFORMIN HCL [Suspect]
     Dosage: 1000 MG, UNK
     Route: 048
  3. TRIATEC                            /00885601/ [Suspect]
     Dosage: 10 MG, UNK
     Route: 048
  4. COUMADIN [Concomitant]
     Dosage: 2 MG, UNK
  5. NOVONORM [Concomitant]
     Dosage: 2 MG, UNK
  6. DIAMICRON [Concomitant]
     Dosage: 30 MG, UNK
  7. ELISOR [Concomitant]
     Dosage: 40 MG, UNK
  8. CARDENSIEL [Concomitant]
     Dosage: 2.5 MG, UNK
  9. MOPRAL                             /00661201/ [Concomitant]
     Dosage: 20 MG, UNK
  10. HEMIGOXINE [Concomitant]

REACTIONS (6)
  - BLOOD CREATININE INCREASED [None]
  - COMA [None]
  - DRUG INTERACTION [None]
  - HYPOTENSION [None]
  - LACTIC ACIDOSIS [None]
  - RENAL FAILURE ACUTE [None]
